FAERS Safety Report 21122651 (Version 2)
Quarter: 2022Q3

REPORT INFORMATION
  Report Type: Spontaneous
  Country: US (occurrence: None)
  Receive Date: 20220723
  Receipt Date: 20220905
  Transmission Date: 20221026
  Serious: No
  Sender: FDA-Public Use
  Company Number: 2022A258722

PATIENT
  Age: 68 Year
  Sex: Female
  Weight: 97.5 kg

DRUGS (2)
  1. BYDUREON BCISE [Suspect]
     Active Substance: EXENATIDE
     Indication: Type 2 diabetes mellitus
     Route: 058
  2. JARDIANCE [Concomitant]
     Active Substance: EMPAGLIFLOZIN

REACTIONS (8)
  - Glycosylated haemoglobin abnormal [Not Recovered/Not Resolved]
  - Body height decreased [Not Recovered/Not Resolved]
  - Weight increased [Not Recovered/Not Resolved]
  - Sinus perforation [Unknown]
  - Product dose omission issue [Not Recovered/Not Resolved]
  - Inability to afford medication [Unknown]
  - Wrong technique in device usage process [Unknown]
  - Product storage error [Unknown]

NARRATIVE: CASE EVENT DATE: 20220101
